FAERS Safety Report 4780938-6 (Version None)
Quarter: 2005Q3

REPORT INFORMATION
  Report Type: 
  Country: None (occurrence: None)
  Receive Date: 20050927
  Receipt Date: 20050927
  Transmission Date: 20060218
  Serious: Yes (Other)
  Sender: FDA-Public Use
  Company Number: None

PATIENT
  Age: 24 Year
  Sex: Male
  Weight: 120.2032 kg

DRUGS (3)
  1. EFFEXOR XR [Suspect]
     Indication: DEPRESSION
     Dosage: 375MG DAILY PO
     Route: 048
     Dates: start: 20040726, end: 20050925
  2. DEPAKOTE ER [Concomitant]
  3. ADALAT CC [Concomitant]

REACTIONS (8)
  - FEELING JITTERY [None]
  - HALLUCINATION [None]
  - INSOMNIA [None]
  - NERVOUSNESS [None]
  - TINNITUS [None]
  - TREATMENT NONCOMPLIANCE [None]
  - TREMOR [None]
  - VISUAL DISTURBANCE [None]
